FAERS Safety Report 6949309-8 (Version None)
Quarter: 2010Q3

REPORT INFORMATION
  Report Type: 
  Country: None (occurrence: None)
  Receive Date: 20100828
  Receipt Date: 20091214
  Transmission Date: 20110219
  Serious: No
  Sender: FDA-Public Use
  Company Number: US-ABBOTT-09P-163-0615252-00

PATIENT
  Age: 65 Year
  Sex: Male

DRUGS (8)
  1. NIASPAN [Suspect]
     Indication: BLOOD CHOLESTEROL INCREASED
     Dates: start: 20091101
  2. SIMVASTATIN [Concomitant]
     Indication: BLOOD CHOLESTEROL INCREASED
     Dates: start: 20091101
  3. ONGLYZA [Concomitant]
     Indication: DIABETES MELLITUS
  4. LISINOPRIL [Concomitant]
     Indication: CARDIAC OPERATION
  5. METFORMIN [Concomitant]
     Indication: DIABETES MELLITUS
  6. METOPROLOL [Concomitant]
     Indication: CARDIAC OPERATION
  7. ASPIRIN [Concomitant]
     Indication: PROPHYLAXIS
  8. FISH OIL [Concomitant]
     Indication: SUPPLEMENTATION THERAPY

REACTIONS (1)
  - FEELING HOT [None]
